FAERS Safety Report 4788465-7 (Version None)
Quarter: 2005Q4

REPORT INFORMATION
  Report Type: 
  Country: None (occurrence: None)
  Receive Date: 20051005
  Receipt Date: 20051005
  Transmission Date: 20060501
  Serious: Yes (Hospitalization)
  Sender: FDA-Public Use
  Company Number: None

PATIENT
  Age: 64 Year
  Sex: Male
  Weight: 86 kg

DRUGS (17)
  1. HEPARIN [Suspect]
     Indication: ANTICOAGULANT THERAPY
     Dates: end: 20040928
  2. ACETAMINOPHEN [Concomitant]
  3. ASPIRIN [Concomitant]
  4. CEFAZOLIN [Concomitant]
  5. CHLOROTHIAZIDE [Concomitant]
  6. REGULAR INSULIN SLIDING SCALE [Concomitant]
  7. FUROSEMIDE [Concomitant]
  8. LANSOPRAZOLE [Concomitant]
  9. MAGNESIUM SULFATE [Concomitant]
  10. MORPHINE [Concomitant]
  11. PHENYLEPHRINE [Concomitant]
  12. PROPOFOL [Concomitant]
  13. RANITIDINE [Concomitant]
  14. EPINEPHRINE [Concomitant]
  15. FENTANYL [Concomitant]
  16. MILRINONE [Concomitant]
  17. POTASSIUM CHLORIDE [Concomitant]

REACTIONS (3)
  - BLUE TOE SYNDROME [None]
  - HEART TRANSPLANT [None]
  - HEPARIN-INDUCED THROMBOCYTOPENIA [None]
